FAERS Safety Report 24120268 (Version 1)
Quarter: 2024Q3

REPORT INFORMATION
  Report Type: Spontaneous
  Country: US (occurrence: US)
  Receive Date: 20240722
  Receipt Date: 20240722
  Transmission Date: 20241017
  Serious: Yes (Other)
  Sender: ROCHE
  Company Number: US-CHEPLA-2024008728

PATIENT
  Sex: Female

DRUGS (7)
  1. XELODA [Suspect]
     Active Substance: CAPECITABINE
     Indication: Breast cancer female
     Dosage: INITIAL DOSAGE
     Route: 050
  2. XELODA [Suspect]
     Active Substance: CAPECITABINE
     Dosage: DOSE REDUCED DUE TO EVENTS HAD OCCURRED
     Route: 050
  3. HERCEPTIN [Suspect]
     Active Substance: TRASTUZUMAB
     Indication: Product used for unknown indication
     Dosage: PAST HISTORY
     Route: 050
  4. HERCEPTIN [Suspect]
     Active Substance: TRASTUZUMAB
     Route: 065
  5. TUKYSA [Suspect]
     Active Substance: TUCATINIB
     Indication: Human epidermal growth factor receptor positive
     Dosage: 200 MG FOUR 50 MG TABLETS EVERY 12 HOURS
     Route: 048
  6. TUKYSA [Suspect]
     Active Substance: TUCATINIB
     Dosage: 250 MG, 2X/DAY
     Route: 048
  7. TUKYSA [Suspect]
     Active Substance: TUCATINIB
     Dosage: 300 MG, 2X/DAY
     Route: 048

REACTIONS (7)
  - Neutropenia [Unknown]
  - Fatigue [Unknown]
  - Stomatitis [Unknown]
  - Anaemia [Unknown]
  - Thrombocytopenia [Unknown]
  - Dizziness [Unknown]
  - Movement disorder [Unknown]
